FAERS Safety Report 17346066 (Version 6)
Quarter: 2020Q2

REPORT INFORMATION
  Report Type: Report from Study
  Country: US (occurrence: US)
  Receive Date: 20200129
  Receipt Date: 20200430
  Transmission Date: 20200713
  Serious: Yes (Hospitalization)
  Sender: FDA-Public Use
  Company Number: US-GILEAD-2020-0447955

PATIENT
  Age: 76 Year
  Sex: Male

DRUGS (2)
  1. AMBRISENTAN [Suspect]
     Active Substance: AMBRISENTAN
     Indication: PRODUCT USED FOR UNKNOWN INDICATION
     Dosage: 5 MG, QD
     Route: 048
     Dates: start: 20191224
  2. ADEMPAS [Concomitant]
     Active Substance: RIOCIGUAT
     Dosage: 2 MG
     Route: 065

REACTIONS (10)
  - Contusion [Unknown]
  - Exercise tolerance decreased [Not Recovered/Not Resolved]
  - Headache [Recovered/Resolved]
  - Chest pain [Unknown]
  - Asthenia [Unknown]
  - Dyspepsia [Unknown]
  - Fall [Unknown]
  - Oedema peripheral [Unknown]
  - Cardiac disorder [Unknown]
  - Oxygen consumption increased [Unknown]

NARRATIVE: CASE EVENT DATE: 20200418
